FAERS Safety Report 4897799-7 (Version None)
Quarter: 2006Q1

REPORT INFORMATION
  Report Type: 
  Country: None (occurrence: None)
  Receive Date: 20060130
  Receipt Date: 20060117
  Transmission Date: 20060701
  Serious: Yes (Hospitalization, Other)
  Sender: FDA-Public Use
  Company Number: 2006-01-1121

PATIENT
  Age: 81 Year
  Sex: Male
  Weight: 86 kg

DRUGS (20)
  1. INTEGRILIN [Suspect]
     Indication: ACUTE CORONARY SYNDROME
     Dosage: 15.5-105 MG* INTRAVENOUS
     Route: 042
     Dates: start: 20051201, end: 20051201
  2. INTEGRILIN [Suspect]
     Indication: ACUTE CORONARY SYNDROME
     Dosage: 15.5-105 MG* INTRAVENOUS
     Route: 042
     Dates: start: 20051201, end: 20051201
  3. BIVALIRUDIN INJECTABLE SOLUTION [Suspect]
     Indication: ACUTE CORONARY SYNDROME
     Dosage: 51.6-62.2MG* INTRAVENOUS
     Route: 042
     Dates: start: 20051201, end: 20051201
  4. BIVALIRUDIN INJECTABLE SOLUTION [Suspect]
     Indication: ACUTE CORONARY SYNDROME
     Dosage: 51.6-62.2MG* INTRAVENOUS
     Route: 042
     Dates: start: 20051201, end: 20051201
  5. BIVALIRUDIN INJECTABLE SOLUTION [Suspect]
     Indication: ACUTE CORONARY SYNDROME
     Dosage: 51.6-62.2MG* INTRAVENOUS
     Route: 042
     Dates: start: 20051201, end: 20051201
  6. WARFARIN SODIUM [Concomitant]
  7. RANITIDINE HYDROCHLORIDE [Concomitant]
  8. PLAVIX [Concomitant]
  9. ASPIRIN [Concomitant]
  10. DARVOCET-N 50 [Concomitant]
  11. METOCLOPRAMIDE HYDROCHLORIDE [Concomitant]
  12. ZETIA [Concomitant]
  13. SIMVASTATIN [Concomitant]
  14. DOCUSATE SODIUM [Concomitant]
  15. DIGOXIN [Concomitant]
  16. FUROSEMIDE [Concomitant]
  17. PROTONIX [Concomitant]
  18. ADVAIR DISKUS 100/50 [Concomitant]
  19. ALBUTEROL SULFATE HFA [Concomitant]
  20. PARACETAMOL [Concomitant]

REACTIONS (5)
  - GROIN PAIN [None]
  - HYPOTENSION [None]
  - INFUSION RELATED REACTION [None]
  - PELVIC HAEMATOMA [None]
  - RETROPERITONEAL HAEMATOMA [None]
